FAERS Safety Report 6984821-7 (Version None)
Quarter: 2010Q3

REPORT INFORMATION
  Report Type: 
  Country: None (occurrence: None)
  Receive Date: 20100915
  Receipt Date: 20100913
  Transmission Date: 20110219
  Serious: Yes (Other)
  Sender: FDA-Public Use
  Company Number: IN-ROXANE LABORATORIES, INC.-2010-RO-01211RO

PATIENT
  Age: 32 Year
  Sex: Female

DRUGS (2)
  1. LIDOCAINE [Suspect]
     Indication: NERVE BLOCK
  2. EPINEPHRINE [Suspect]
     Indication: NERVE BLOCK

REACTIONS (2)
  - DIPLOPIA [None]
  - VITH NERVE PARALYSIS [None]
